FAERS Safety Report 5041067-X (Version None)
Quarter: 2006Q2

REPORT INFORMATION
  Report Type: 
  Country: None (occurrence: None)
  Receive Date: 20060601
  Receipt Date: 20060222
  Transmission Date: 20061013
  Serious: No
  Sender: FDA-Public Use
  Company Number: 2006PV009078

PATIENT
  Age: 61 Year
  Sex: Female
  Weight: 89.8122 kg

DRUGS (1)
  1. BYETTA [Suspect]
     Indication: GLUCOSE TOLERANCE IMPAIRED
     Dosage: 5 MCG;QD;SC
     Route: 058
     Dates: start: 20060120

REACTIONS (4)
  - DYSPEPSIA [None]
  - ERUCTATION [None]
  - FLATULENCE [None]
  - NAUSEA [None]
